FAERS Safety Report 21298643 (Version 2)
Quarter: 2022Q3

REPORT INFORMATION
  Report Type: Spontaneous
  Country: AU (occurrence: AU)
  Receive Date: 20220906
  Receipt Date: 20220914
  Transmission Date: 20221027
  Serious: Yes (Other)
  Sender: FDA-Public Use
  Company Number: AU-PFIZER INC-202201114688

PATIENT
  Age: 91 Year
  Sex: Female
  Weight: 70 kg

DRUGS (14)
  1. PRISTIQ EXTENDED-RELEASE [Suspect]
     Active Substance: DESVENLAFAXINE SUCCINATE
     Indication: Depression
     Dosage: 50 MG, 1X/DAY
     Dates: end: 20220905
  2. PRISTIQ EXTENDED-RELEASE [Suspect]
     Active Substance: DESVENLAFAXINE SUCCINATE
     Dosage: 2 OF THE 50MGS
  3. PRISTIQ EXTENDED-RELEASE [Suspect]
     Active Substance: DESVENLAFAXINE SUCCINATE
     Dosage: 50 MG, 2X/DAY, AT 11AM AND 11PM
     Dates: start: 20220906
  4. METHOTREXATE SODIUM [Suspect]
     Active Substance: METHOTREXATE SODIUM
     Dosage: 2.5 MG, WEEKLY
  5. METHOTREXATE SODIUM [Suspect]
     Active Substance: METHOTREXATE SODIUM
     Dosage: 2 MG, WEEKLY
     Dates: start: 2022
  6. FOLIC ACID [Concomitant]
     Active Substance: FOLIC ACID
     Dosage: 3 TIMES A WEEK
  7. KRILL OIL [Concomitant]
     Active Substance: DIETARY SUPPLEMENT\KRILL OIL
     Indication: Pain
  8. GLUCOSAMINE [Concomitant]
     Active Substance: GLUCOSAMINE
     Indication: Pain
  9. UBIQUINOL [Concomitant]
     Active Substance: UBIQUINOL
     Dosage: 1 DAILY
  10. GINKGO [Concomitant]
     Active Substance: GINKGO
     Dosage: 1 DAILY
  11. METFORMIN [Concomitant]
     Active Substance: METFORMIN HYDROCHLORIDE
     Dosage: 1 DAILY
  12. VITAMIN C [Concomitant]
     Active Substance: ASCORBIC ACID
  13. VITAMIN D NOS [Concomitant]
     Active Substance: VITAMIN D NOS
  14. VITAMIN B [Concomitant]
     Active Substance: VITAMIN B
     Indication: Fatigue
     Dosage: 3 MONTHS APART

REACTIONS (11)
  - Circumstance or information capable of leading to medication error [Unknown]
  - Drug dependence [Unknown]
  - Malaise [Unknown]
  - Withdrawal syndrome [Unknown]
  - Headache [Unknown]
  - Off label use [Unknown]
  - Blood pressure abnormal [Recovered/Resolved]
  - Headache [Recovered/Resolved]
  - Fatigue [Recovered/Resolved]
  - Vomiting [Recovered/Resolved]
  - Neoplasm [Recovered/Resolved]

NARRATIVE: CASE EVENT DATE: 20220101
